FAERS Safety Report 18175909 (Version 1)
Quarter: 2020Q3

REPORT INFORMATION
  Report Type: Spontaneous
  Country: US (occurrence: US)
  Receive Date: 20200820
  Receipt Date: 20200820
  Transmission Date: 20201103
  Serious: Yes (Life-Threatening, Hospitalization, Other)
  Sender: FDA-Public Use
  Company Number: US-GLAXOSMITHKLINE-US2020159065

PATIENT
  Sex: Male

DRUGS (1)
  1. ALLI [Suspect]
     Active Substance: ORLISTAT
     Indication: PRODUCT USED FOR UNKNOWN INDICATION
     Dosage: UNK ((TWO AND HALF WEEKS)
     Dates: start: 202007, end: 202008

REACTIONS (5)
  - Appendicectomy [Unknown]
  - Appendicitis perforated [Unknown]
  - Constipation [Unknown]
  - Gastrointestinal infection [Unknown]
  - Abdominal pain upper [Unknown]
